FAERS Safety Report 16937517 (Version 1)
Quarter: 2019Q4

REPORT INFORMATION
  Report Type: Report from Study
  Country: BR (occurrence: BR)
  Receive Date: 20191018
  Receipt Date: 20191018
  Transmission Date: 20200122
  Serious: Yes (Other)
  Sender: FDA-Public Use
  Company Number: NVSC2019BR006856

PATIENT
  Age: 67 Year
  Sex: Male

DRUGS (1)
  1. PAZOPANIB [Suspect]
     Active Substance: PAZOPANIB
     Indication: METASTASES TO KIDNEY
     Dosage: UNK
     Route: 065
     Dates: start: 20190919

REACTIONS (12)
  - Diabetic metabolic decompensation [Unknown]
  - Tongue disorder [Unknown]
  - Feeding disorder [Unknown]
  - Tongue discomfort [Unknown]
  - Diarrhoea [Unknown]
  - Diabetes mellitus [Unknown]
  - Cardiac disorder [Unknown]
  - Feeling abnormal [Unknown]
  - Metabolic disorder [Unknown]
  - Mastication disorder [Unknown]
  - Aphthous ulcer [Unknown]
  - Tongue ulceration [Unknown]

NARRATIVE: CASE EVENT DATE: 201909
